FAERS Safety Report 7374596-4 (Version None)
Quarter: 2011Q1

REPORT INFORMATION
  Report Type: 
  Country: None (occurrence: None)
  Receive Date: 20110325
  Receipt Date: 20100420
  Transmission Date: 20110831
  Serious: No
  Sender: FDA-Public Use
  Company Number: US-MYLANLABS-2010S1006903

PATIENT
  Age: 49 Year
  Sex: Female

DRUGS (1)
  1. FENTANYL-100 [Suspect]
     Indication: BACK PAIN
     Dosage: CHANGED Q48H
     Route: 062
     Dates: start: 20090101

REACTIONS (4)
  - APPLICATION SITE RASH [None]
  - URTICARIA [None]
  - RASH GENERALISED [None]
  - OEDEMA [None]
